FAERS Safety Report 19231916 (Version 2)
Quarter: 2021Q3

REPORT INFORMATION
  Report Type: Spontaneous
  Country: JP (occurrence: JP)
  Receive Date: 20210507
  Receipt Date: 20210716
  Transmission Date: 20211014
  Serious: Yes (Hospitalization, Other)
  Sender: FDA-Public Use
  Company Number: JP-TEVA-2021-JP-1883582

PATIENT
  Age: 71 Year
  Sex: Female
  Weight: 50 kg

DRUGS (6)
  1. AZILECT [Suspect]
     Active Substance: RASAGILINE MESYLATE
     Indication: PARKINSON^S DISEASE
     Dosage: .5 MILLIGRAM DAILY;
     Route: 048
     Dates: start: 20200629, end: 20200823
  2. AZILECT [Suspect]
     Active Substance: RASAGILINE MESYLATE
     Dosage: 1 MILLIGRAM DAILY;
     Route: 048
     Dates: start: 20200824, end: 20201125
  3. NAUZELIN [Concomitant]
     Active Substance: DOMPERIDONE
     Dates: start: 20191217
  4. EC DOPARL [Suspect]
     Active Substance: BENSERAZIDE HYDROCHLORIDE\LEVODOPA
     Indication: PARKINSON^S DISEASE
     Route: 048
     Dates: start: 20140422
  5. MAGNESIUM OXIDE. [Concomitant]
     Active Substance: MAGNESIUM OXIDE
     Dates: start: 20180911
  6. EC DOPARL [Suspect]
     Active Substance: BENSERAZIDE HYDROCHLORIDE\LEVODOPA
     Dosage: 400 MILLIGRAM DAILY;
     Route: 048
     Dates: start: 201807

REACTIONS (7)
  - Night sweats [Unknown]
  - Delusion [Recovered/Resolved]
  - Hallucination [Recovered/Resolved]
  - Affect lability [Recovered/Resolved]
  - Decreased activity [Recovered/Resolved]
  - Balance disorder [Unknown]
  - Panic disorder [Recovered/Resolved]

NARRATIVE: CASE EVENT DATE: 20200824
